FAERS Safety Report 8486381 (Version 2)
Quarter: 2014Q1

REPORT INFORMATION
  Report Type: Spontaneous
  Country: US (occurrence: US)
  Receive Date: 20120402
  Receipt Date: 20140207
  Transmission Date: 20141002
  Serious: No
  Sender: FDA-Public Use
  Company Number: US-JNJFOC-20120312927

PATIENT
  Sex: Male

DRUGS (3)
  1. INVEGA SUSTENNA [Suspect]
     Indication: SCHIZOPHRENIA
     Dosage: INITIATION DOSE
     Route: 030
     Dates: start: 201203
  2. KLONOPIN [Concomitant]
     Indication: CATATONIA
     Route: 065
  3. METFORMIN [Concomitant]
     Indication: WEIGHT INCREASED
     Route: 065

REACTIONS (4)
  - Injection site pain [Recovered/Resolved]
  - Device malfunction [Unknown]
  - Injection site haemorrhage [Recovered/Resolved]
  - Drug dose omission [Unknown]
